FAERS Safety Report 19087097 (Version 1)
Quarter: 2021Q2

REPORT INFORMATION
  Report Type: Spontaneous
  Country: US (occurrence: US)
  Receive Date: 20210402
  Receipt Date: 20210402
  Transmission Date: 20210717
  Serious: Yes (Death, Hospitalization)
  Sender: FDA-Public Use
  Company Number: US-ROCHE-2801380

PATIENT
  Age: 59 Year
  Sex: Female
  Weight: 61.5 kg

DRUGS (13)
  1. ATORVASTATIN [Concomitant]
     Active Substance: ATORVASTATIN
     Route: 048
  2. ACTIVASE [Suspect]
     Active Substance: ALTEPLASE
  3. EPIPEN [Concomitant]
     Active Substance: EPINEPHRINE
     Indication: FOOD ALLERGY
  4. ACTIVASE [Suspect]
     Active Substance: ALTEPLASE
     Indication: ISCHAEMIC STROKE
     Dosage: ONE TIME DOSE ;ONGOING: NO
     Route: 040
     Dates: start: 20210327
  5. ACTIVASE [Suspect]
     Active Substance: ALTEPLASE
     Dosage: 100 ML/HR ;ONGOING: NO
     Route: 041
     Dates: start: 20210327
  6. LISINOPRIL. [Concomitant]
     Active Substance: LISINOPRIL
     Route: 048
  7. PATANOL [Concomitant]
     Active Substance: OLOPATADINE HYDROCHLORIDE
     Route: 047
  8. GLIPIZIDE. [Concomitant]
     Active Substance: GLIPIZIDE
     Route: 048
  9. NAPROXEN. [Concomitant]
     Active Substance: NAPROXEN
     Route: 048
  10. FAMOTIDINE. [Concomitant]
     Active Substance: FAMOTIDINE
     Route: 048
  11. LORATADINE. [Concomitant]
     Active Substance: LORATADINE
     Route: 048
  12. ACTIVASE [Suspect]
     Active Substance: ALTEPLASE
  13. FLUTICASONE. [Concomitant]
     Active Substance: FLUTICASONE
     Dosage: 2 SPRAYS DAILY IN EACH NARE ;ONGOING: NO
     Route: 045

REACTIONS (2)
  - Haemorrhage intracranial [Fatal]
  - Blood pressure increased [Fatal]

NARRATIVE: CASE EVENT DATE: 20210327
